FAERS Safety Report 8348172-0 (Version None)
Quarter: 2012Q2

REPORT INFORMATION
  Report Type: 
  Country: None (occurrence: None)
  Receive Date: 20120507
  Receipt Date: 20120426
  Transmission Date: 20120825
  Serious: No
  Sender: FDA-Public Use
  Company Number: 2012P1016643

PATIENT

DRUGS (2)
  1. FAMOTIDINE [Suspect]
  2. MULTIPLE UNSPECIFIED MEDICATIONS [Concomitant]

REACTIONS (1)
  - HEPATIC FUNCTION ABNORMAL [None]
